FAERS Safety Report 5758610-5 (Version None)
Quarter: 2008Q2

REPORT INFORMATION
  Report Type: 
  Country: None (occurrence: None)
  Receive Date: 20080604
  Receipt Date: 20080527
  Transmission Date: 20081010
  Serious: Yes (Other)
  Sender: FDA-Public Use
  Company Number: B0523315A

PATIENT
  Sex: Female

DRUGS (2)
  1. ZYBAN [Suspect]
     Route: 048
     Dates: start: 20080502, end: 20080524
  2. ETHINYLESTRADIOL + GESTODENE [Concomitant]
     Indication: CONTRACEPTION
     Route: 048

REACTIONS (3)
  - CONTUSION [None]
  - CONVULSION [None]
  - LOSS OF CONSCIOUSNESS [None]
